FAERS Safety Report 25817270 (Version 1)
Quarter: 2025Q3

REPORT INFORMATION
  Report Type: Spontaneous
  Country: US (occurrence: None)
  Receive Date: 20250917
  Receipt Date: 20250917
  Transmission Date: 20251021
  Serious: Yes (Other)
  Sender: FDA-CTU
  Company Number: None

PATIENT
  Age: 71 Year
  Sex: Female

DRUGS (1)
  1. LEQVIO [Suspect]
     Active Substance: INCLISIRAN SODIUM
     Dates: start: 20250819

REACTIONS (3)
  - Insomnia [None]
  - Burning sensation [None]
  - Post procedural complication [None]

NARRATIVE: CASE EVENT DATE: 20250819
